FAERS Safety Report 9587338 (Version 1)
Quarter: 2013Q4

REPORT INFORMATION
  Report Type: Report from Study
  Country: JP (occurrence: JP)
  Receive Date: 20131003
  Receipt Date: 20131003
  Transmission Date: 20140711
  Serious: Yes (Disabling)
  Sender: FDA-Public Use
  Company Number: JP-ELI_LILLY_AND_COMPANY-JP201309008354

PATIENT
  Age: 71 Year
  Sex: Female
  Weight: 42 kg

DRUGS (5)
  1. TADALAFIL [Suspect]
     Indication: PULMONARY ARTERIAL HYPERTENSION
     Dosage: 20 MG, EACH MORNING
     Route: 048
     Dates: start: 20101215, end: 20101216
  2. TADALAFIL [Suspect]
     Dosage: 20 MG, BID
     Route: 048
     Dates: start: 20101217, end: 20110201
  3. BERAPROST SODIUM [Concomitant]
     Indication: PULMONARY ARTERIAL HYPERTENSION
     Dosage: UNK
     Route: 048
     Dates: start: 20081008
  4. CALBLOCK [Concomitant]
     Indication: AORTIC VALVE INCOMPETENCE
     Dosage: UNK
     Route: 048
  5. JUVELA                             /00110502/ [Concomitant]
     Indication: MORPHOEA
     Dosage: UNK
     Route: 048

REACTIONS (1)
  - Dyspnoea [Recovering/Resolving]
